FAERS Safety Report 5528543-8 (Version None)
Quarter: 2007Q4

REPORT INFORMATION
  Report Type: 
  Country: None (occurrence: None)
  Receive Date: 20071121
  Receipt Date: 20071112
  Transmission Date: 20080405
  Serious: Yes (Hospitalization, Disabling)
  Sender: FDA-Public Use
  Company Number: 8024132

PATIENT
  Age: 74 Year
  Sex: Male

DRUGS (7)
  1. XYZALL /01530201/ [Suspect]
     Indication: ASTHMA
     Dosage: PO
     Route: 048
  2. XYZALL /01530201/ [Suspect]
     Indication: RHINITIS
     Dosage: PO
     Route: 048
  3. AETOXISCLEROL [Suspect]
     Indication: VARICOSE VEIN
     Dosage: 3 ML IV
     Route: 042
     Dates: start: 20060403, end: 20060403
  4. SINGULAIR [Suspect]
     Indication: ASTHMA
     Dosage: 1 DF 1/D PO
     Route: 048
     Dates: start: 20051116, end: 20060415
  5. SINGULAIR [Suspect]
     Indication: RHINITIS
     Dosage: 1 DF 1/D PO
     Route: 048
     Dates: start: 20051116, end: 20060415
  6. SERETIDE /01420901/ [Suspect]
     Indication: ASTHMA
     Dosage: 2/D IM
     Route: 030
  7. SERETIDE /01420901/ [Suspect]
     Indication: RHINITIS
     Dosage: 2/D IM
     Route: 030

REACTIONS (19)
  - ALLERGIC GRANULOMATOUS ANGIITIS [None]
  - AREFLEXIA [None]
  - AXONAL NEUROPATHY [None]
  - BLOOD ALKALINE PHOSPHATASE INCREASED [None]
  - BRONCHITIS [None]
  - DYSAESTHESIA [None]
  - EOSINOPHIL COUNT INCREASED [None]
  - GAIT DISTURBANCE [None]
  - LEUKOCYTOSIS [None]
  - NECROSIS [None]
  - PAIN [None]
  - PAIN IN EXTREMITY [None]
  - PARAESTHESIA [None]
  - POLYNEUROPATHY [None]
  - PURPURA [None]
  - SENSORY DISTURBANCE [None]
  - STASIS DERMATITIS [None]
  - TRANSAMINASES INCREASED [None]
  - VASCULITIS [None]
